FAERS Safety Report 23913687 (Version 2)
Quarter: 2024Q2

REPORT INFORMATION
  Report Type: Spontaneous
  Country: DE (occurrence: DE)
  Receive Date: 20240529
  Receipt Date: 20240607
  Transmission Date: 20240716
  Serious: Yes (Death, Hospitalization)
  Sender: FDA-Public Use
  Company Number: DE-CHIESI-2024CHF03047

PATIENT
  Sex: Male

DRUGS (1)
  1. ELFABRIO [Suspect]
     Active Substance: PEGUNIGALSIDASE ALFA-IWXJ
     Indication: Fabry^s disease
     Dosage: 4 DOSAGE FORM
     Route: 042
     Dates: start: 202311, end: 20240523

REACTIONS (5)
  - Death [Fatal]
  - Cerebrovascular accident [Recovered/Resolved]
  - Cerebral thrombosis [Not Recovered/Not Resolved]
  - Cerebral haemorrhage [Recovered/Resolved]
  - Off label use [Recovered/Resolved]

NARRATIVE: CASE EVENT DATE: 20230101
